FAERS Safety Report 9319789 (Version 2)
Quarter: 2013Q2

REPORT INFORMATION
  Report Type: Report from Study
  Country: DE (occurrence: DE)
  Receive Date: 20130530
  Receipt Date: 20130614
  Transmission Date: 20140414
  Serious: Yes (Hospitalization)
  Sender: FDA-Public Use
  Company Number: DE-GLAXOSMITHKLINE-B0895405A

PATIENT
  Age: 64 Year
  Sex: Female
  Weight: 89 kg

DRUGS (2)
  1. PAZOPANIB [Suspect]
     Indication: SARCOMA
     Dosage: 800MG PER DAY
     Dates: start: 20130503, end: 20130523
  2. GEMCITABINE [Suspect]
     Indication: SARCOMA
     Dosage: 1000MGM2 CYCLIC
     Dates: start: 20130502, end: 20130523

REACTIONS (1)
  - Pyrexia [Recovered/Resolved]
